FAERS Safety Report 24318031 (Version 1)
Quarter: 2024Q3

REPORT INFORMATION
  Report Type: Spontaneous
  Country: US (occurrence: US)
  Receive Date: 20240913
  Receipt Date: 20240913
  Transmission Date: 20241017
  Serious: No
  Sender: MERZ
  Company Number: US-Merz Pharmaceuticals GmbH-2024080000255

PATIENT
  Sex: Male

DRUGS (1)
  1. XEOMIN [Suspect]
     Active Substance: INCOBOTULINUMTOXINA
     Indication: Neuromuscular blocking therapy
     Dosage: 25 025
     Route: 030

REACTIONS (13)
  - Panic attack [Unknown]
  - Amnesia [Unknown]
  - Sleep disorder [Unknown]
  - Aphasia [Unknown]
  - Eye disorder [Unknown]
  - Weight decreased [Unknown]
  - Back pain [Unknown]
  - Headache [Unknown]
  - Depression [Unknown]
  - Bedridden [Unknown]
  - Myalgia [Unknown]
  - Dyspnoea [Unknown]
  - Off label use [Unknown]
